FAERS Safety Report 8650945 (Version 2)
Quarter: 2012Q4

REPORT INFORMATION
  Report Type: 
  Country: US (occurrence: US)
  Receive Date: 20120705
  Receipt Date: 20121211
  Transmission Date: 20130627
  Serious: Yes (Hospitalization)
  Sender: FDA-Public Use
  Company Number: US-CELGENEUS-163-21880-12063557

PATIENT
  Sex: Female
  Weight: 54.03 kg

DRUGS (8)
  1. REVLIMID [Suspect]
     Indication: MULTIPLE MYELOMA
     Dosage: 15 Milligram
     Route: 048
     Dates: start: 20120206, end: 20120521
  2. REVLIMID [Suspect]
     Dosage: 20 Milligram
     Route: 048
     Dates: start: 201212
  3. VELCADE [Suspect]
     Indication: DRUG USE FOR UNKNOWN INDICATION
     Route: 065
     Dates: start: 201201, end: 20120521
  4. DECADRON [Concomitant]
     Indication: DRUG USE FOR UNKNOWN INDICATION
     Route: 065
     Dates: start: 201201, end: 20120521
  5. LASIX [Concomitant]
     Indication: DRUG USE FOR UNKNOWN INDICATION
     Route: 065
     Dates: start: 201201, end: 201205
  6. OMEPRAZOLE [Concomitant]
     Indication: DRUG USE FOR UNKNOWN INDICATION
     Route: 065
     Dates: start: 201201, end: 201205
  7. ACYCLOVIR [Concomitant]
     Indication: DRUG USE FOR UNKNOWN INDICATION
     Route: 065
     Dates: start: 201201, end: 201205
  8. METOPROLOL [Concomitant]
     Indication: DRUG USE FOR UNKNOWN INDICATION
     Route: 065
     Dates: start: 201201, end: 201205

REACTIONS (1)
  - Colonic obstruction [Unknown]
